FAERS Safety Report 4914290-X (Version None)
Quarter: 2006Q1

REPORT INFORMATION
  Report Type: 
  Country: None (occurrence: None)
  Receive Date: 20060213
  Receipt Date: 20060201
  Transmission Date: 20060701
  Serious: Yes (Life-Threatening, Hospitalization)
  Sender: FDA-Public Use
  Company Number: 2005JP002044

PATIENT
  Age: 69 Year
  Sex: Male
  Weight: 58.7 kg

DRUGS (12)
  1. FUNGUARD                  (MICAFUNGIN) [Suspect]
     Indication: FUNGAL INFECTION
     Dosage: 100.00 MG, BID, IV DRIP  : 50.00 MG, UID/QD, IV DRIP
     Route: 041
     Dates: start: 20050929, end: 20051006
  2. FUNGUARD                  (MICAFUNGIN) [Suspect]
     Indication: FUNGAL INFECTION
     Dosage: 100.00 MG, BID, IV DRIP  : 50.00 MG, UID/QD, IV DRIP
     Route: 041
     Dates: start: 20051007, end: 20051007
  3. BIOFERMIN R (STREPTOCOCCUS FAECALIS) [Concomitant]
  4. EXCELASE (ENZYMES NOS) [Concomitant]
  5. TRANCOLON [Concomitant]
  6. HALCION [Concomitant]
  7. GLOBULIN (IMMUNOGLOBULIN HUMAN NORMAL) [Concomitant]
  8. KAKODIN (DOPAMINE HYDROCHLORIDE) [Concomitant]
  9. MIRACLID (ULINASTATIN) [Concomitant]
  10. NOVO HEPARIN [Concomitant]
  11. NONTHRON (ANTITHROMBIN III) [Concomitant]
  12. IMMUNE GLOBULIN (HUMAN) [Concomitant]

REACTIONS (8)
  - DEPRESSED LEVEL OF CONSCIOUSNESS [None]
  - FLUID RETENTION [None]
  - GENERALISED OEDEMA [None]
  - HUNGER [None]
  - MALAISE [None]
  - OEDEMA [None]
  - PLEURAL EFFUSION [None]
  - RENAL FAILURE [None]
